FAERS Safety Report 18238423 (Version 2)
Quarter: 2021Q3

REPORT INFORMATION
  Report Type: Spontaneous
  Country: US (occurrence: US)
  Receive Date: 20200907
  Receipt Date: 20210705
  Transmission Date: 20211014
  Serious: No
  Sender: FDA-Public Use
  Company Number: US-PFIZER INC-2020344718

PATIENT
  Age: 48 Year
  Sex: Female

DRUGS (1)
  1. IBRANCE [Suspect]
     Active Substance: PALBOCICLIB
     Indication: BREAST CANCER FEMALE
     Dosage: 125 MG, CYCLIC (125 MG PO X 21 D) (125 MG QD X 21 DAYS)
     Route: 048
     Dates: start: 20190716

REACTIONS (4)
  - Alopecia [Unknown]
  - Fatigue [Unknown]
  - Stomatitis [Not Recovered/Not Resolved]
  - Alopecia [Not Recovered/Not Resolved]
